FAERS Safety Report 14819088 (Version 1)
Quarter: 2018Q2

REPORT INFORMATION
  Report Type: Spontaneous
  Country: CA (occurrence: CA)
  Receive Date: 20180427
  Receipt Date: 20180427
  Transmission Date: 20180711
  Serious: Yes (Hospitalization)
  Sender: FDA-Public Use
  Company Number: CA-TEVA-2018-CA-884441

PATIENT
  Sex: Female
  Weight: 69.46 kg

DRUGS (2)
  1. PANTOPRAZOLE [Suspect]
     Active Substance: PANTOPRAZOLE
     Route: 065
  2. OMNIPAQUE [Suspect]
     Active Substance: IOHEXOL

REACTIONS (6)
  - Anaphylactic shock [Unknown]
  - Erythema [Unknown]
  - Hot flush [Unknown]
  - Vomiting [Unknown]
  - Hypotension [Unknown]
  - Oedema mouth [Unknown]
